FAERS Safety Report 5941136-3 (Version None)
Quarter: 2008Q4

REPORT INFORMATION
  Report Type: 
  Country: None (occurrence: None)
  Receive Date: 20081104
  Receipt Date: 20081020
  Transmission Date: 20090506
  Serious: Yes (Other)
  Sender: FDA-Public Use
  Company Number: US-GENENTECH-270516

PATIENT
  Age: 8 Year
  Sex: Male

DRUGS (4)
  1. RITUXAN [Suspect]
     Indication: IDIOPATHIC THROMBOCYTOPENIC PURPURA
     Dosage: 375 MG/M2, UNK
     Route: 042
     Dates: start: 20030613
  2. AZATHIOPRINE [Suspect]
     Indication: IDIOPATHIC THROMBOCYTOPENIC PURPURA
     Dosage: UNK
     Route: 065
     Dates: start: 20030320
  3. HEPATITIS B IMMUNE GLOBULIN (HUMAN) [Suspect]
     Indication: IDIOPATHIC THROMBOCYTOPENIC PURPURA
     Dosage: UNK
     Route: 042
     Dates: start: 20030125
  4. CORTICOSTEROIDS (UNK INGREDIENTS) [Suspect]
     Indication: IDIOPATHIC THROMBOCYTOPENIC PURPURA
     Dosage: UNK
     Route: 065
     Dates: start: 20030125, end: 20030402

REACTIONS (1)
  - IMMUNODEFICIENCY COMMON VARIABLE [None]
